FAERS Safety Report 9016256 (Version 1)
Quarter: 2013Q1

REPORT INFORMATION
  Report Type: Spontaneous
  Country: FR (occurrence: FR)
  Receive Date: 20130116
  Receipt Date: 20130116
  Transmission Date: 20140127
  Serious: Yes (Hospitalization)
  Sender: FDA-Public Use
  Company Number: FR-B.I. PHARMACEUTICALS,INC./RIDGEFIELD-2013-FF-00089FF

PATIENT
  Age: 76 Year
  Sex: Male

DRUGS (7)
  1. PRADAXA [Suspect]
     Indication: THROMBOSIS PROPHYLAXIS
     Dosage: 150 MG
     Route: 048
     Dates: start: 20111121, end: 20111129
  2. CONTRAMAL [Concomitant]
  3. DOLIPRANE [Concomitant]
  4. MECIR [Concomitant]
     Route: 048
  5. SOTALOL [Concomitant]
  6. SPIRIVA [Concomitant]
     Route: 055
  7. AMLOR [Concomitant]

REACTIONS (3)
  - Drug ineffective [Recovered/Resolved]
  - Thrombophlebitis [Recovered/Resolved]
  - Dyspnoea [Recovered/Resolved]
